FAERS Safety Report 4472685-5 (Version None)
Quarter: 2004Q4

REPORT INFORMATION
  Report Type: 
  Country: None (occurrence: None)
  Receive Date: 20041012
  Receipt Date: 20041012
  Transmission Date: 20050328
  Serious: Yes (Hospitalization)
  Sender: FDA-Public Use
  Company Number: None

PATIENT
  Age: 51 Year
  Sex: Male
  Weight: 89.3 kg

DRUGS (4)
  1. LISINOPRIL [Suspect]
     Indication: HYPERTENSION
     Dosage: 20 MG PO DAILY
     Route: 048
     Dates: start: 20031011, end: 20031013
  2. PLAVIX [Concomitant]
  3. WARFARIN SODIUM [Concomitant]
  4. IMDUR [Concomitant]

REACTIONS (1)
  - RENAL FAILURE ACUTE [None]
